FAERS Safety Report 7382729-9 (Version None)
Quarter: 2011Q1

REPORT INFORMATION
  Report Type: 
  Country: None (occurrence: None)
  Receive Date: 20110330
  Receipt Date: 20110321
  Transmission Date: 20110831
  Serious: No
  Sender: FDA-Public Use
  Company Number: US-BIOGENIDEC-2010BI042267

PATIENT
  Age: 55 Year
  Sex: Female

DRUGS (1)
  1. TYSABRI [Suspect]
     Indication: MULTIPLE SCLEROSIS
     Route: 042
     Dates: start: 20091027

REACTIONS (6)
  - MUSCULAR WEAKNESS [None]
  - OEDEMA PERIPHERAL [None]
  - DEPRESSED MOOD [None]
  - FATIGUE [None]
  - MALAISE [None]
  - MUSCLE SPASMS [None]
